FAERS Safety Report 19455395 (Version 1)
Quarter: 2021Q2

REPORT INFORMATION
  Report Type: Spontaneous
  Country: JP (occurrence: JP)
  Receive Date: 20210623
  Receipt Date: 20210623
  Transmission Date: 20210717
  Serious: Yes (Other)
  Sender: FDA-Public Use
  Company Number: JP-JNJFOC-20210649178

PATIENT
  Age: 72 Year
  Sex: Female

DRUGS (6)
  1. BROMAZEPAM [Concomitant]
     Active Substance: BROMAZEPAM
  2. XARELTO [Suspect]
     Active Substance: RIVAROXABAN
     Indication: ILIAC VEIN OCCLUSION
     Dosage: 10MG
     Route: 048
  3. BROTIZOLAM [Concomitant]
     Active Substance: BROTIZOLAM
  4. DULOXETINE HYDROCHLORIDE. [Concomitant]
     Active Substance: DULOXETINE HYDROCHLORIDE
  5. AZOSEMIDE [Concomitant]
     Active Substance: AZOSEMIDE
  6. XARELTO [Suspect]
     Active Substance: RIVAROXABAN
     Indication: DEEP VEIN THROMBOSIS
     Dosage: UNK
     Route: 048

REACTIONS (3)
  - Iliac vein occlusion [Unknown]
  - Peripheral swelling [Unknown]
  - Arteriovenous fistula [Unknown]
